FAERS Safety Report 8234964-5 (Version None)
Quarter: 2012Q1

REPORT INFORMATION
  Report Type: 
  Country: None (occurrence: None)
  Receive Date: 20120322
  Receipt Date: 20120313
  Transmission Date: 20120608
  Serious: Yes (Death)
  Sender: FDA-Public Use
  Company Number: 2010SP051502

PATIENT
  Age: 22 Year
  Sex: Female
  Weight: 89.3586 kg

DRUGS (3)
  1. NUVARING [Suspect]
     Indication: CONTRACEPTION
     Dates: end: 20080813
  2. NUVARING [Suspect]
     Indication: CONTRACEPTION
     Dates: start: 20041103
  3. NUVARING [Suspect]
     Indication: CONTRACEPTION
     Dates: start: 20050501

REACTIONS (3)
  - PULMONARY EMBOLISM [None]
  - FALL [None]
  - DEEP VEIN THROMBOSIS [None]
